FAERS Safety Report 5570854-4 (Version None)
Quarter: 2007Q4

REPORT INFORMATION
  Report Type: 
  Country: None (occurrence: None)
  Receive Date: 20071221
  Receipt Date: 20071217
  Transmission Date: 20080405
  Serious: Yes (Disabling, Other)
  Sender: FDA-Public Use
  Company Number: CA-ASTRAZENECA-2007UW26427

PATIENT
  Sex: Female

DRUGS (1)
  1. FASLODEX [Suspect]
     Indication: METASTATIC NEOPLASM
     Route: 030
     Dates: start: 20061109, end: 20071009

REACTIONS (2)
  - ALOPECIA [None]
  - DRUG INEFFECTIVE [None]
